FAERS Safety Report 7016924-5 (Version None)
Quarter: 2010Q3

REPORT INFORMATION
  Report Type: 
  Country: None (occurrence: None)
  Receive Date: 20100927
  Receipt Date: 20100916
  Transmission Date: 20110219
  Serious: Yes (Hospitalization, Other)
  Sender: FDA-Public Use
  Company Number: US-PFIZER INC-2010117382

PATIENT
  Age: 51 Year
  Sex: Female

DRUGS (2)
  1. DILANTIN-125 [Suspect]
     Indication: CONVULSION
     Dosage: UNK
  2. AVONEX [Suspect]
     Dosage: 30MCG, WEEKLY
     Route: 030
     Dates: start: 20070928

REACTIONS (2)
  - CONVULSION [None]
  - THERAPEUTIC AGENT TOXICITY [None]
